FAERS Safety Report 11749471 (Version 4)
Quarter: 2017Q1

REPORT INFORMATION
  Report Type: Spontaneous
  Country: US (occurrence: US)
  Receive Date: 20151118
  Receipt Date: 20170119
  Transmission Date: 20170428
  Serious: No
  Sender: FDA-Public Use
  Company Number: US-PFIZER INC-2015380228

PATIENT
  Age: 78 Year
  Sex: Male

DRUGS (2)
  1. LYRICA [Suspect]
     Active Substance: PREGABALIN
     Indication: DIABETIC NEUROPATHY
     Dosage: UNK
     Dates: start: 1995
  2. LYRICA [Suspect]
     Active Substance: PREGABALIN
     Indication: NEUROPATHY PERIPHERAL

REACTIONS (5)
  - Feeling abnormal [Unknown]
  - Drug ineffective [Unknown]
  - Dizziness [Unknown]
  - Weight increased [Unknown]
  - Drug intolerance [Unknown]
